FAERS Safety Report 19010135 (Version 1)
Quarter: 2021Q1

REPORT INFORMATION
  Report Type: Spontaneous
  Country: JP (occurrence: JP)
  Receive Date: 20210316
  Receipt Date: 20210316
  Transmission Date: 20210420
  Serious: Yes (Life-Threatening, Hospitalization, Other)
  Sender: FDA-Public Use
  Company Number: JP-LUPIN PHARMACEUTICALS INC.-2021-03217

PATIENT
  Age: 16 Month
  Sex: Male

DRUGS (16)
  1. LEVETIRACETAM. [Suspect]
     Active Substance: LEVETIRACETAM
     Indication: PRODUCT USED FOR UNKNOWN INDICATION
     Dosage: UNK AFTER SUSPICION OF STEVEN JOHNSON SYNDROME WITH PHENOBARBITAL
     Route: 065
  2. THIOPENTAL SODIUM. [Suspect]
     Active Substance: THIOPENTAL SODIUM
     Indication: ENCEPHALOPATHY
     Dosage: UNK
     Route: 065
  3. ACETAMINOPHEN. [Suspect]
     Active Substance: ACETAMINOPHEN
     Indication: ENCEPHALOPATHY
     Dosage: UNK
     Route: 065
  4. PHENOBARBITAL. [Suspect]
     Active Substance: PHENOBARBITAL
     Indication: ENCEPHALOPATHY
     Dosage: UNK (REPLACED BY LEVETIRACETAM DUE TO SUSPICION OF STEVEN JOHNSONS SYNDROME)
     Route: 065
  5. TRICLOFOS SODIUM [Concomitant]
     Active Substance: TRICLOFOS SODIUM
     Indication: ENCEPHALOPATHY
     Dosage: UNK
     Route: 065
  6. FAMOTIDINE. [Concomitant]
     Active Substance: FAMOTIDINE
     Indication: ENCEPHALOPATHY
     Dosage: UNK
     Route: 065
  7. MIDAZOLAM. [Suspect]
     Active Substance: MIDAZOLAM
     Indication: ENCEPHALOPATHY
     Dosage: UNK
     Route: 065
  8. IMMUNOGLOBULINS NOS [Concomitant]
     Active Substance: IMMUNE GLOBULIN NOS
     Indication: ENCEPHALOPATHY
     Dosage: UNK
     Route: 042
  9. AMPICILLIN/SULBACTAM [Suspect]
     Active Substance: AMPICILLIN SODIUM\SULBACTAM SODIUM
     Indication: ENCEPHALOPATHY
     Dosage: UNK
     Route: 065
  10. EDARAVONE [Concomitant]
     Active Substance: EDARAVONE
     Indication: ENCEPHALOPATHY
     Dosage: UNK
     Route: 065
  11. MANNITOL. [Concomitant]
     Active Substance: MANNITOL
     Indication: ENCEPHALOPATHY
     Dosage: UNK
     Route: 065
  12. METHYLPREDNISOLONE. [Concomitant]
     Active Substance: METHYLPREDNISOLONE
     Indication: ENCEPHALOPATHY
     Dosage: UNK
     Route: 065
  13. DEXAMETHASONE. [Concomitant]
     Active Substance: DEXAMETHASONE
     Indication: ENCEPHALOPATHY
     Dosage: UNK
     Route: 065
  14. CEFTRIAXONE. [Suspect]
     Active Substance: CEFTRIAXONE
     Indication: ENCEPHALOPATHY
     Dosage: UNK
     Route: 065
  15. FOSPHENYTOIN [Suspect]
     Active Substance: FOSPHENYTOIN
     Indication: ENCEPHALOPATHY
     Dosage: UNK
     Route: 065
  16. LACTOBACILLUS [Concomitant]
     Active Substance: LACTOBACILLUS ACIDOPHILUS
     Indication: ENCEPHALOPATHY
     Dosage: UNK
     Route: 065

REACTIONS (1)
  - Toxic epidermal necrolysis [Recovered/Resolved]
